FAERS Safety Report 9364023 (Version 1)
Quarter: 2013Q2

REPORT INFORMATION
  Report Type: Spontaneous
  Country: IL (occurrence: None)
  Receive Date: 20130620
  Receipt Date: 20130620
  Transmission Date: 20140414
  Serious: Yes (Hospitalization, Other)
  Sender: FDA-Public Use
  Company Number: 7218367

PATIENT
  Age: 9 Month
  Sex: Female

DRUGS (3)
  1. L-THYROXIN [Suspect]
     Indication: HYPOTHYROIDISM
     Dosage: 30-40 MICROGRAM/DAY.
  2. OCTREOTIDE [Suspect]
     Indication: HYPOTHYROIDISM
     Dosage: 9 TO 12 MCG/KG/DAY, BUT FROM AGE OF 1 MONTH HIGHEST DOSE WAS 9.9 MCG/KG/DAY
  3. DIAZOXIDE (DIAZOXIDE) (DIAZOXIDE) [Concomitant]

REACTIONS (6)
  - Hepatitis [None]
  - Upper respiratory tract infection [None]
  - Gastroenteritis rotavirus [None]
  - Adenovirus test positive [None]
  - Smooth muscle antibody positive [None]
  - Liver injury [None]
